FAERS Safety Report 8235994-X (Version None)
Quarter: 2012Q1

REPORT INFORMATION
  Report Type: 
  Country: None (occurrence: None)
  Receive Date: 20120326
  Receipt Date: 20120319
  Transmission Date: 20120608
  Serious: No
  Sender: FDA-Public Use
  Company Number: US-BAYER-2012-028387

PATIENT
  Sex: Female

DRUGS (4)
  1. ALEVE (CAPLET) [Suspect]
     Indication: ABDOMINAL DISTENSION
  2. ALEVE (CAPLET) [Suspect]
     Indication: HEADACHE
     Dosage: UNK
     Route: 048
  3. ALEVE (CAPLET) [Suspect]
     Indication: BACK PAIN
  4. ALEVE (CAPLET) [Suspect]
     Indication: DYSMENORRHOEA

REACTIONS (4)
  - DYSMENORRHOEA [None]
  - HEADACHE [None]
  - ABDOMINAL DISTENSION [None]
  - BACK PAIN [None]
